FAERS Safety Report 7333012-9 (Version None)
Quarter: 2011Q1

REPORT INFORMATION
  Report Type: 
  Country: None (occurrence: None)
  Receive Date: 20110222
  Receipt Date: 20110215
  Transmission Date: 20110831
  Serious: Yes (Life-Threatening)
  Sender: FDA-Public Use
  Company Number: 2011SP007203

PATIENT
  Age: 26 Year
  Sex: Male

DRUGS (7)
  1. ZEMURON [Suspect]
     Indication: PRODUCT USED FOR UNKNOWN INDICATION
  2. MIDAZOLAM (MIDAZOLAM /00634101/) [Suspect]
     Indication: PRODUCT USED FOR UNKNOWN INDICATION
     Dosage: 5 MG
  3. SUFENTANIL CITRATE [Suspect]
     Indication: PRODUCT USED FOR UNKNOWN INDICATION
  4. SODIUM CHLORIDE (SODIUM CHLORIDE /00075401/) [Suspect]
     Indication: PRODUCT USED FOR UNKNOWN INDICATION
  5. TORADOL [Concomitant]
  6. PROPOFOL [Suspect]
     Indication: PRODUCT USED FOR UNKNOWN INDICATION
  7. LACTATED RINGERS (FLEBOBAG RING LACT) [Suspect]
     Indication: PRODUCT USED FOR UNKNOWN INDICATION

REACTIONS (3)
  - OPERATIVE HAEMORRHAGE [None]
  - PROTHROMBIN LEVEL ABNORMAL [None]
  - INTERNATIONAL NORMALISED RATIO INCREASED [None]
